FAERS Safety Report 10068605 (Version 1)
Quarter: 2014Q2

REPORT INFORMATION
  Report Type: Spontaneous
  Country: US (occurrence: US)
  Receive Date: 20140409
  Receipt Date: 20140409
  Transmission Date: 20141212
  Serious: Yes (Hospitalization)
  Sender: FDA-Public Use
  Company Number: US-GLAXOSMITHKLINE-A1067706A

PATIENT
  Age: 80 Year
  Sex: Female

DRUGS (7)
  1. PROMACTA [Suspect]
     Indication: IMMUNE THROMBOCYTOPENIC PURPURA
     Dosage: 50MG PER DAY
     Route: 048
     Dates: start: 2010
  2. LIPITOR [Concomitant]
  3. PROTONIX [Concomitant]
  4. ASPIRIN [Concomitant]
  5. LOPRESSOR [Concomitant]
  6. ATIVAN [Concomitant]
  7. ANTIDEPRESSANT [Concomitant]

REACTIONS (2)
  - Myocardial infarction [Unknown]
  - Platelet count increased [Unknown]
